FAERS Safety Report 5119547-8 (Version None)
Quarter: 2006Q4

REPORT INFORMATION
  Report Type: 
  Country: None (occurrence: None)
  Receive Date: 20061003
  Receipt Date: 20060919
  Transmission Date: 20070319
  Serious: Yes (Other)
  Sender: FDA-Public Use
  Company Number: PHEH2006US11911

PATIENT
  Age: 10 Year
  Sex: Female

DRUGS (1)
  1. TRILEPTAL [Suspect]

REACTIONS (3)
  - BRAIN OPERATION [None]
  - CHROMATURIA [None]
  - CONVULSION [None]
